FAERS Safety Report 7750855-8 (Version None)
Quarter: 2011Q3

REPORT INFORMATION
  Report Type: 
  Country: None (occurrence: None)
  Receive Date: 20110914
  Receipt Date: 20110907
  Transmission Date: 20111222
  Serious: Yes (Hospitalization, Other)
  Sender: FDA-Public Use
  Company Number: JP-PFIZER INC-2011209808

PATIENT
  Age: 65 Year
  Sex: Female

DRUGS (5)
  1. SERTRALINE HYDROCHLORIDE [Suspect]
  2. AMOXAPINE [Suspect]
  3. TRIAZOLAM [Suspect]
  4. ETIZOLAM [Suspect]
  5. ALPRAZOLAM [Suspect]

REACTIONS (10)
  - AGITATED DEPRESSION [None]
  - SUICIDAL IDEATION [None]
  - LOGORRHOEA [None]
  - BIPOLAR I DISORDER [None]
  - HYPERVENTILATION [None]
  - DRUG DEPENDENCE [None]
  - CHEST PAIN [None]
  - OVERDOSE [None]
  - ALCOHOLISM [None]
  - DYSPNOEA [None]
